FAERS Safety Report 9940160 (Version 1)
Quarter: 2014Q1

REPORT INFORMATION
  Report Type: Report from Study
  Country: US (occurrence: US)
  Receive Date: 20140303
  Receipt Date: 20140303
  Transmission Date: 20141002
  Serious: No
  Sender: FDA-Public Use
  Company Number: US-ABBVIE-13P-163-1033868-00

PATIENT
  Age: 45 Year
  Sex: Male

DRUGS (8)
  1. HUMIRA [Suspect]
     Indication: CROHN^S DISEASE
     Dates: start: 20111121
  2. IMURAN [Concomitant]
     Indication: PRODUCT USED FOR UNKNOWN INDICATION
     Dosage: DAILY
  3. PRILOSEC [Concomitant]
     Indication: GASTROOESOPHAGEAL REFLUX DISEASE
     Dosage: DAILY
  4. METFORMIN [Concomitant]
     Indication: DIABETES MELLITUS
  5. PROAIR [Concomitant]
     Indication: ASTHMA
  6. ADVAIR [Concomitant]
     Indication: ASTHMA
  7. XANAX [Concomitant]
     Indication: ANXIETY
  8. XANAX [Concomitant]
     Indication: PROPHYLAXIS

REACTIONS (2)
  - Inappropriate schedule of drug administration [Unknown]
  - Drug dose omission [Unknown]
